FAERS Safety Report 8919153 (Version 3)
Quarter: 2015Q2

REPORT INFORMATION
  Report Type: Spontaneous
  Country: US (occurrence: US)
  Receive Date: 20121121
  Receipt Date: 20150525
  Transmission Date: 20150821
  Serious: Yes (Other)
  Sender: FDA-Public Use
  Company Number: US-JNJFOC-20121106465

PATIENT
  Age: 67 Year
  Sex: Male
  Weight: 106.6 kg

DRUGS (19)
  1. NAPROXEN. [Concomitant]
     Active Substance: NAPROXEN
     Indication: ARTHRITIS
     Route: 048
  2. SIMVASTATIN. [Concomitant]
     Active Substance: SIMVASTATIN
     Indication: BLOOD PRESSURE
     Route: 048
  3. REMICADE [Suspect]
     Active Substance: INFLIXIMAB
     Indication: RHEUMATOID ARTHRITIS
     Dosage: INFUSED FROM 1325 UNTIL 1630
     Route: 042
     Dates: start: 20111011
  4. REMICADE [Suspect]
     Active Substance: INFLIXIMAB
     Indication: RHEUMATOID ARTHRITIS
     Dosage: INFUSION ADMINISTERED FROM 1410 UNTIL 1710, MAXIMUM RATE OF 95 CC/HR
     Route: 042
     Dates: start: 20120329
  5. LOSARTAN [Concomitant]
     Active Substance: LOSARTAN
     Indication: HYPERTENSION
     Route: 048
     Dates: start: 2009
  6. PREDNISONE. [Concomitant]
     Active Substance: PREDNISONE
     Indication: RHEUMATOID ARTHRITIS
     Route: 048
     Dates: start: 2010
  7. ASPIRIN. [Concomitant]
     Active Substance: ASPIRIN
     Indication: ANTICOAGULANT THERAPY
     Route: 048
  8. OMEPRAZOLE. [Concomitant]
     Active Substance: OMEPRAZOLE
     Indication: GASTRIC DISORDER
     Route: 048
  9. SULFAZINE [Concomitant]
     Active Substance: SULFASALAZINE
     Route: 048
     Dates: start: 2010
  10. REMICADE [Suspect]
     Active Substance: INFLIXIMAB
     Indication: RHEUMATOID ARTHRITIS
     Dosage: INFUSION ADMINISTERED FROM 1325 UNTIL 1545, RATE WAS 110 CC/HR
     Route: 042
     Dates: start: 20120202
  11. LOSARTAN [Concomitant]
     Active Substance: LOSARTAN
     Indication: ULCER
     Route: 048
     Dates: start: 2009
  12. HYDROXYCHLOROQUINE [Concomitant]
     Active Substance: HYDROXYCHLOROQUINE
     Indication: ARTHRITIS
     Route: 048
     Dates: start: 2010
  13. REMICADE [Suspect]
     Active Substance: INFLIXIMAB
     Indication: RHEUMATOID ARTHRITIS
     Dosage: INFUSION ADMINISTERED FROM 1320 UNTIL 1638
     Route: 042
     Dates: start: 20111208
  14. REMICADE [Suspect]
     Active Substance: INFLIXIMAB
     Indication: RHEUMATOID ARTHRITIS
     Dosage: INFUSION ADMINISTERED FROM 1135 UNTIL 1520
     Route: 042
     Dates: start: 20120720
  15. REMICADE [Suspect]
     Active Substance: INFLIXIMAB
     Indication: RHEUMATOID ARTHRITIS
     Dosage: RATE OF INFUSION WAS LESS THAN 100 CC/HR
     Route: 042
     Dates: start: 20121109
  16. REMICADE [Suspect]
     Active Substance: INFLIXIMAB
     Indication: RHEUMATOID ARTHRITIS
     Dosage: INFUSION ADMINISTERED FROM 1130 UNTIL 1530, ADMINISTERED AT A RATE OF LESS THAN 100 CC/HR
     Route: 042
     Dates: start: 20120524
  17. REMICADE [Suspect]
     Active Substance: INFLIXIMAB
     Indication: RHEUMATOID ARTHRITIS
     Dosage: RATE OF INFUSION NEVER EXCEED 100 CC/HR
     Route: 042
     Dates: start: 20120904
  18. CENTRUM VITAMINS-SILVER [Concomitant]
     Route: 065
  19. BAYER ASPIRIN [Concomitant]
     Active Substance: ASPIRIN
     Indication: TRANSIENT ISCHAEMIC ATTACK
     Route: 065

REACTIONS (8)
  - Feeling abnormal [Unknown]
  - Dizziness [Recovered/Resolved]
  - Malaise [Recovered/Resolved]
  - Pyrexia [Recovered/Resolved]
  - Pain [Recovered/Resolved]
  - Nausea [Recovered/Resolved]
  - Infusion related reaction [Recovered/Resolved]
  - Chills [Recovered/Resolved]

NARRATIVE: CASE EVENT DATE: 20111011
